FAERS Safety Report 20169644 (Version 5)
Quarter: 2022Q1

REPORT INFORMATION
  Report Type: Spontaneous
  Country: DE (occurrence: DE)
  Receive Date: 20211210
  Receipt Date: 20220120
  Transmission Date: 20220424
  Serious: Yes (Hospitalization)
  Sender: FDA-Public Use
  Company Number: DE-CELGENE-DEU-20211107386

PATIENT
  Age: 9 Decade
  Sex: Male

DRUGS (2)
  1. REVLIMID [Suspect]
     Active Substance: LENALIDOMIDE
     Indication: Haemoglobin decreased
     Route: 048
     Dates: start: 202108, end: 20210913
  2. REVLIMID [Suspect]
     Active Substance: LENALIDOMIDE
     Indication: 5q minus syndrome

REACTIONS (5)
  - Arthralgia [Not Recovered/Not Resolved]
  - Vasculitis [Recovered/Resolved]
  - Arthralgia [Not Recovered/Not Resolved]
  - Wound secretion [Not Recovered/Not Resolved]
  - Drug ineffective [Unknown]

NARRATIVE: CASE EVENT DATE: 20210101
